FAERS Safety Report 10201243 (Version 1)
Quarter: 2014Q2

REPORT INFORMATION
  Report Type: Spontaneous
  Country: ES (occurrence: ES)
  Receive Date: 20140528
  Receipt Date: 20140528
  Transmission Date: 20141212
  Serious: Yes (Death)
  Sender: FDA-Public Use
  Company Number: ES-US-EMD SERONO, INC.-7294479

PATIENT
  Sex: Male

DRUGS (2)
  1. SAIZEN [Suspect]
     Indication: GROWTH HORMONE DEFICIENCY
     Route: 058
     Dates: start: 20130513, end: 201311
  2. SAIZEN [Suspect]
     Route: 058
     Dates: start: 20090922, end: 20130512

REACTIONS (2)
  - Respiratory failure [Fatal]
  - Transplantation complication [Fatal]
